FAERS Safety Report 6814736-6 (Version None)
Quarter: 2010Q3

REPORT INFORMATION
  Report Type: 
  Country: None (occurrence: None)
  Receive Date: 20100702
  Receipt Date: 20100622
  Transmission Date: 20110219
  Serious: Yes (Hospitalization)
  Sender: FDA-Public Use
  Company Number: DE-ROCHE-674109

PATIENT
  Sex: Female
  Weight: 68.3 kg

DRUGS (17)
  1. BEVACIZUMAB [Suspect]
     Indication: BREAST CANCER
     Dosage: LAST DOSE PRIOR TO SAE: 7 DECEMBER 2009; DRUG TEMPORARILY INTERRUPTED.
     Route: 042
     Dates: start: 20091207
  2. BEVACIZUMAB [Suspect]
     Dosage: DRUG TERMINATED, FREQUENCY: DAY 1, DOSE AND FREQUENCY TAKEN FROM PROTOCOL
     Route: 042
     Dates: start: 20100104
  3. BEVACIZUMAB [Suspect]
     Dosage: LAST DOSE PRIOR TO SAE: 04 JANUARY 2010.
     Route: 042
  4. CAPECITABINE [Suspect]
     Indication: BREAST CANCER
     Dosage: LAST DOSE PRIOR TO SAE: 7 DECEMBER 2009; DRUG TEMPORARILY INTERRUPTED.
     Route: 065
     Dates: start: 20091207
  5. CAPECITABINE [Suspect]
     Dosage: DAYS 1-14, LAST DOSE PRIOR TO SAE: 17 JAN 2010, DOSE TAKEN FROM PROTOCOL, DRUG TERMINATED
     Route: 065
     Dates: start: 20100104
  6. CAPECITABINE [Suspect]
     Dosage: LAST DOSE PRIOR TO SAE: 04 JANUARY 2010.
     Route: 065
  7. VINORELBINE [Suspect]
     Indication: BREAST CANCER
     Dosage: LAST DOSE PRIOR TO SAE: 7 DECEMBER 2009; DRUG TEMPORARILY INTERRUPTED.
     Route: 065
     Dates: start: 20091207
  8. VINORELBINE [Suspect]
     Dosage: DAYS 1+8; DOSE TAKEN FROM PROTOCOL, LAST DOSE PRIOR TO SAE: 11 JAN 2010, DRUG TERMINATED
     Route: 065
     Dates: start: 20100104
  9. VINORELBINE [Suspect]
     Dosage: LAST DOSE PRIOR TO SAE: 04 JANUARY 2010
     Route: 065
  10. AMARYL [Concomitant]
     Dosage: TDD: 2 MG/ 1/2 TABLET
     Dates: start: 20091123
  11. SPIRONOLACTONE [Concomitant]
     Dates: start: 20091123
  12. SPIRONOLACTONE [Concomitant]
     Dosage: TDD: 50 MG/1TABLET
     Dates: start: 20091123
  13. SPIRONOLACTONE [Concomitant]
     Dates: start: 20091125
  14. RAMIPRIL [Concomitant]
     Dosage: TDD: 5MG/1TABLET
     Dates: start: 20091125
  15. AMLODIPINE [Concomitant]
  16. TOREM [Concomitant]
     Dosage: DRUG: TOREM 10; TDD: 10 MG/1 TABLET
     Dates: start: 20091210
  17. PANTOZOL [Concomitant]
     Dosage: TDD: 40MG/2TABLET
     Dates: start: 20091210

REACTIONS (5)
  - DISEASE PROGRESSION [None]
  - ILL-DEFINED DISORDER [None]
  - MEDICAL DEVICE COMPLICATION [None]
  - NAUSEA [None]
  - VOMITING [None]
